FAERS Safety Report 21902260 (Version 1)
Quarter: 2023Q1

REPORT INFORMATION
  Report Type: Spontaneous
  Country: US (occurrence: None)
  Receive Date: 20230124
  Receipt Date: 20230124
  Transmission Date: 20230417
  Serious: No
  Sender: FDA-Public Use
  Company Number: US-USWM, LLC-UWM202209-000029

PATIENT
  Age: 76 Year
  Sex: Female
  Weight: 56.69 kg

DRUGS (4)
  1. NADOLOL [Suspect]
     Active Substance: NADOLOL
     Indication: Product used for unknown indication
  2. MOMETASONE [Concomitant]
     Active Substance: MOMETASONE
     Dosage: NOT PROVIDED
  3. FAMOTIDINE [Concomitant]
     Active Substance: FAMOTIDINE
  4. FLECAINIDE [Concomitant]
     Active Substance: FLECAINIDE
     Dosage: NOT PROVIDED
     Dates: start: 20220904

REACTIONS (1)
  - COVID-19 [Unknown]
